FAERS Safety Report 10381127 (Version 1)
Quarter: 2014Q3

REPORT INFORMATION
  Report Type: Spontaneous
  Country: US (occurrence: None)
  Receive Date: 20140808
  Receipt Date: 20140808
  Transmission Date: 20150326
  Serious: Yes (Other)
  Sender: FDA-Public Use
  Company Number: FK201403078

PATIENT
  Age: 16 Month
  Sex: Female

DRUGS (5)
  1. CLONAZEPAM (CLONAZEPAM) [Concomitant]
  2. VALPROATE (MANUFACTURER UNKNOWN) (VALPROATE SODIUM) (VALPROATE SODIUM) [Suspect]
     Active Substance: VALPROATE SODIUM
     Indication: CONVULSION PROPHYLAXIS
     Dosage: 300 MG, PER DAY, UNKNOWN
  3. TOPIRAMATE (TOPIRAMATE) [Suspect]
     Active Substance: TOPIRAMATE
     Indication: CONVULSION PROPHYLAXIS
     Dosage: 37.5 MG, UNKNOWN, UNKNOWN
  4. LEVETIRACETAM (LEVETIRACETAM) [Concomitant]
     Active Substance: LEVETIRACETAM
  5. VEVOCARNITINE (LEVOCARNITINE) [Concomitant]

REACTIONS (2)
  - Metabolic disorder [None]
  - Drug interaction [None]
